FAERS Safety Report 9721549 (Version 1)
Quarter: 2013Q4

REPORT INFORMATION
  Report Type: Spontaneous
  Country: DE (occurrence: DE)
  Receive Date: 20131130
  Receipt Date: 20131130
  Transmission Date: 20140711
  Serious: Yes (Life-Threatening, Hospitalization, Other)
  Sender: FDA-Public Use
  Company Number: GXKR2013DE003683

PATIENT
  Sex: 0

DRUGS (4)
  1. DICLOFENAC [Suspect]
     Dosage: MATERNAL DOSE: 225 [ MG/D ]/ 2-3 MAL T?GLICH 75 MG
     Route: 064
  2. THYROXIN [Concomitant]
     Dosage: MATERNAL DOSE: 100 [?G/D (-75) ]/ 75 -100 ?G/D
     Route: 064
  3. PREDNISOLON [Concomitant]
     Dosage: MATERNAL DOSE: 5 [MG/D ]
     Route: 064
  4. RANITIDIN [Concomitant]
     Dosage: MATERNAL DOSE: UNK UKN, UNK
     Route: 064

REACTIONS (4)
  - Large intestine perforation [Recovered/Resolved with Sequelae]
  - Intraventricular haemorrhage [Unknown]
  - Cardiac hypertrophy [Unknown]
  - Ductus arteriosus premature closure [Not Recovered/Not Resolved]
